FAERS Safety Report 10655563 (Version 2)
Quarter: 2015Q1

REPORT INFORMATION
  Report Type: Spontaneous
  Country: US (occurrence: US)
  Receive Date: 20141216
  Receipt Date: 20150115
  Transmission Date: 20150720
  Serious: Yes (Other)
  Sender: FDA-Public Use
  Company Number: US-INCYTE CORPORATION-2014IN003771

PATIENT
  Age: 50 Year
  Sex: Female

DRUGS (1)
  1. JAKAFI [Suspect]
     Active Substance: RUXOLITINIB
     Indication: MYELOFIBROSIS
     Dosage: 15 MG, BID
     Route: 048
     Dates: start: 20140822, end: 20141215

REACTIONS (7)
  - Nausea [Unknown]
  - Headache [Unknown]
  - Pain [Unknown]
  - Hepatic enzyme increased [Not Recovered/Not Resolved]
  - Weight increased [Unknown]
  - Tinnitus [Unknown]
  - Dyspnoea [Unknown]

NARRATIVE: CASE EVENT DATE: 20141001
